FAERS Safety Report 9109325 (Version 1)
Quarter: 2013Q1

REPORT INFORMATION
  Report Type: Spontaneous
  Country: CA (occurrence: CA)
  Receive Date: 20130222
  Receipt Date: 20130222
  Transmission Date: 20140127
  Serious: Yes (Hospitalization)
  Sender: FDA-Public Use
  Company Number: CA-ABBOTT-13P-028-1049128-00

PATIENT
  Sex: Female
  Weight: 90.8 kg

DRUGS (2)
  1. MAVIK [Suspect]
     Indication: HYPERTENSION
     Dates: start: 2003, end: 201212
  2. PANTOLOC [Concomitant]
     Indication: GASTROOESOPHAGEAL REFLUX DISEASE

REACTIONS (3)
  - Flank pain [Recovered/Resolved]
  - Blood creatinine increased [Unknown]
  - Blood creatinine increased [Unknown]
